FAERS Safety Report 6270904-6 (Version None)
Quarter: 2009Q3

REPORT INFORMATION
  Report Type: 
  Country: None (occurrence: None)
  Receive Date: 20090715
  Receipt Date: 20090702
  Transmission Date: 20100115
  Serious: Yes (Hospitalization, Other)
  Sender: FDA-Public Use
  Company Number: 2009US0024

PATIENT
  Age: 2 Year
  Sex: Female
  Weight: 12 kg

DRUGS (1)
  1. ORFADIN [Suspect]
     Indication: TYROSINAEMIA
     Dosage: 1 MG/KG, 1 IN 1 D, ORAL
     Route: 048
     Dates: start: 20090311, end: 20090609

REACTIONS (4)
  - ASCITES [None]
  - CONDITION AGGRAVATED [None]
  - LIVER TRANSPLANT [None]
  - RESPIRATORY FAILURE [None]
